FAERS Safety Report 4476612-6 (Version None)
Quarter: 2004Q4

REPORT INFORMATION
  Report Type: 
  Country: None (occurrence: None)
  Receive Date: 20041012
  Receipt Date: 20040930
  Transmission Date: 20050328
  Serious: Yes (Death, Hospitalization)
  Sender: FDA-Public Use
  Company Number: 163-20785-04070027

PATIENT
  Age: 57 Year
  Sex: Male

DRUGS (1)
  1. THALOMID [Suspect]
     Indication: BRAIN NEOPLASM MALIGNANT
     Dosage: 150 MG, DAILY ORAL
     Route: 048
     Dates: start: 20040319

REACTIONS (2)
  - CONFUSIONAL STATE [None]
  - MOTOR DYSFUNCTION [None]
